FAERS Safety Report 15347649 (Version 1)
Quarter: 2018Q3

REPORT INFORMATION
  Report Type: Spontaneous
  Country: US (occurrence: US)
  Receive Date: 20180829
  Receipt Date: 20180829
  Transmission Date: 20181010
  Serious: Yes (Death)
  Sender: FDA-Public Use
  Company Number: None

PATIENT
  Sex: Male

DRUGS (13)
  1. OMEGA 3 [Concomitant]
     Active Substance: OMEGA-3 FATTY ACIDS
  2. POTASSIUM [Concomitant]
     Active Substance: POTASSIUM
  3. GARLIC. [Concomitant]
     Active Substance: GARLIC
  4. MULTI?VITAMIN [Concomitant]
     Active Substance: .ALPHA.-TOCOPHEROL ACETATE, DL-\ASCORBIC ACID\CYANOCOBALAMIN\FLUORIDE ION\FOLIC ACID\NIACIN\PYRIDOXINE\RIBOFLAVIN\THIAMINE\VITAMIN A\VITAMIN D
  5. BUMETANIDE. [Concomitant]
     Active Substance: BUMETANIDE
  6. METOPROLOL TARTRATE. [Concomitant]
     Active Substance: METOPROLOL TARTRATE
  7. OMEPRAZOLE. [Concomitant]
     Active Substance: OMEPRAZOLE
  8. SILDENAFIL. [Suspect]
     Active Substance: SILDENAFIL
     Indication: ERECTILE DYSFUNCTION
     Route: 048
     Dates: start: 20180601
  9. ALPRAZOLAM. [Concomitant]
     Active Substance: ALPRAZOLAM
  10. WARFARIN [Concomitant]
     Active Substance: WARFARIN
  11. EPLERENONE. [Concomitant]
     Active Substance: EPLERENONE
  12. MAG OXIDE [Concomitant]
     Active Substance: MAGNESIUM OXIDE
  13. PROAIR HFA [Concomitant]
     Active Substance: ALBUTEROL SULFATE

REACTIONS (1)
  - Death [None]
